FAERS Safety Report 20012123 (Version 2)
Quarter: 2021Q4

REPORT INFORMATION
  Report Type: Report from Study
  Country: US (occurrence: US)
  Receive Date: 20211029
  Receipt Date: 20211116
  Transmission Date: 20220304
  Serious: Yes (Death, Other)
  Sender: FDA-Public Use
  Company Number: US-HBP-2021US023580

PATIENT
  Age: 78 Year
  Sex: Female

DRUGS (10)
  1. VALCHLOR [Suspect]
     Active Substance: MECHLORETHAMINE
     Indication: Cutaneous T-cell lymphoma
     Dosage: UNK, QD
     Route: 061
     Dates: start: 202109, end: 20211007
  2. METFORMIN [Concomitant]
     Active Substance: METFORMIN HYDROCHLORIDE
     Dosage: UNK, UNKNOWN
  3. IPRATROPIUM [Concomitant]
     Active Substance: IPRATROPIUM
     Dosage: UNK, UNKNOWN
  4. COLCHICINE [Concomitant]
     Active Substance: COLCHICINE
     Dosage: UNK, UNKNOWN
  5. PREVALITE [Concomitant]
     Active Substance: CHOLESTYRAMINE
     Dosage: UNK, UNKNOWN
  6. METOPROLOL [Concomitant]
     Active Substance: METOPROLOL
     Dosage: UNK, UNKNOWN
  7. ALLOPURINOL [Concomitant]
     Active Substance: ALLOPURINOL
     Dosage: UNK, UNKNOWN
  8. FOLIC ACID [Concomitant]
     Active Substance: FOLIC ACID
     Dosage: UNK, UNKNOWN
  9. MAGNESIUM                          /00123201/ [Concomitant]
     Dosage: UNK, UNKNOWN
  10. VITAMIN D2 [Concomitant]
     Active Substance: ERGOCALCIFEROL
     Dosage: UNK, UNKNOWN

REACTIONS (5)
  - Acute pulmonary oedema [Fatal]
  - Pneumonia [Fatal]
  - Cardiac failure [Fatal]
  - Multiple organ dysfunction syndrome [Fatal]
  - Exposure to toxic agent [Fatal]

NARRATIVE: CASE EVENT DATE: 20211007
